FAERS Safety Report 6998226-6 (Version None)
Quarter: 2010Q3

REPORT INFORMATION
  Report Type: 
  Country: None (occurrence: None)
  Receive Date: 20100920
  Receipt Date: 20100713
  Transmission Date: 20110219
  Serious: No
  Sender: FDA-Public Use
  Company Number: US-ASTRAZENECA-2007UW10474

PATIENT
  Sex: Female

DRUGS (4)
  1. SEROQUEL [Suspect]
     Dosage: 500-600MG
     Route: 048
     Dates: start: 20020801
  2. PROZAC [Concomitant]
     Dates: start: 20020801
  3. INDERAL [Concomitant]
     Dates: start: 20020806
  4. PROPRANOLOL [Concomitant]
     Dates: start: 20020801, end: 20020806

REACTIONS (1)
  - HEART RATE INCREASED [None]
